FAERS Safety Report 7332106-1 (Version None)
Quarter: 2011Q1

REPORT INFORMATION
  Report Type: 
  Country: None (occurrence: None)
  Receive Date: 20110222
  Receipt Date: 20110207
  Transmission Date: 20110831
  Serious: Yes (Hospitalization, Other)
  Sender: FDA-Public Use
  Company Number: IMP_05348_2011

PATIENT
  Age: 51 Year
  Sex: Female

DRUGS (3)
  1. DIPYRIDAMOLE [Suspect]
     Indication: PRODUCT USED FOR UNKNOWN INDICATION
     Dosage: (200 MG 60X ORAL)
     Route: 048
  2. OXAZEPAM [Suspect]
     Indication: PRODUCT USED FOR UNKNOWN INDICATION
     Dosage: (10 MG 20X ORAL)
     Route: 048
  3. TEMAZEPAM [Suspect]
     Indication: PRODUCT USED FOR UNKNOWN INDICATION
     Dosage: (20 MG 50X ORAL)
     Route: 048

REACTIONS (11)
  - ELECTROCARDIOGRAM ST SEGMENT DEPRESSION [None]
  - CHEST PAIN [None]
  - LOSS OF CONSCIOUSNESS [None]
  - SUICIDE ATTEMPT [None]
  - ATRIOVENTRICULAR BLOCK FIRST DEGREE [None]
  - PLATELET DISORDER [None]
  - HYPOTENSION [None]
  - DIZZINESS [None]
  - SOMNOLENCE [None]
  - HEADACHE [None]
  - VOMITING [None]
